FAERS Safety Report 19908848 (Version 2)
Quarter: 2021Q4

REPORT INFORMATION
  Report Type: Spontaneous
  Country: US (occurrence: None)
  Receive Date: 20211001
  Receipt Date: 20211209
  Transmission Date: 20220303
  Serious: No
  Sender: FDA-Public Use
  Company Number: 2021A753030

PATIENT
  Sex: Female
  Weight: 77.1 kg

DRUGS (1)
  1. BUDESONIDE\FORMOTEROL\GLYCOPYRRONIUM [Suspect]
     Active Substance: BUDESONIDE\FORMOTEROL\GLYCOPYRRONIUM
     Indication: Chronic obstructive pulmonary disease
     Dosage: 160MCG/9MCG/4.8MCG UNKNOWN
     Route: 055

REACTIONS (4)
  - COVID-19 [Unknown]
  - Intentional device misuse [Unknown]
  - Wrong technique in product usage process [Unknown]
  - Device malfunction [Unknown]
